FAERS Safety Report 7868943 (Version 4)
Quarter: 2013Q4

REPORT INFORMATION
  Report Type: Spontaneous
  Country: US (occurrence: US)
  Receive Date: 20110324
  Receipt Date: 20131217
  Transmission Date: 20140711
  Serious: Yes (Hospitalization)
  Sender: FDA-Public Use
  Company Number: US-BAYER-2011-025213

PATIENT
  Age: 34 Year
  Sex: Female

DRUGS (6)
  1. YASMIN [Suspect]
     Indication: ORAL CONTRACEPTION
     Dosage: UNK
     Dates: start: 200211, end: 200309
  2. YASMIN [Suspect]
     Indication: PREMENSTRUAL SYNDROME
  3. YASMIN [Suspect]
     Indication: PREMENSTRUAL DYSPHORIC DISORDER
  4. ALEVE CAPLET/TABLET,MIDOL EXTENDED RELIEF CAPLET [Concomitant]
  5. DIFLUCAN [Concomitant]
     Dosage: UNK
     Route: 048
     Dates: start: 20030409
  6. METRONIDAZOLE [Concomitant]
     Dosage: UNK
     Route: 048
     Dates: start: 20030415

REACTIONS (2)
  - Cholecystitis chronic [None]
  - Biliary colic [None]
